FAERS Safety Report 5605933-6 (Version None)
Quarter: 2008Q1

REPORT INFORMATION
  Report Type: 
  Country: None (occurrence: None)
  Receive Date: 20080123
  Receipt Date: 20080123
  Transmission Date: 20080703
  Serious: Yes (Other)
  Sender: FDA-Public Use
  Company Number: None

PATIENT
  Age: 84 Year
  Sex: Female
  Weight: 74.8435 kg

DRUGS (1)
  1. ZETIA [Suspect]
     Indication: BLOOD CHOLESTEROL INCREASED
     Dosage: ONE TABLET DAILY PO
     Route: 048
     Dates: start: 20040119, end: 20080122

REACTIONS (5)
  - ABDOMINAL PAIN UPPER [None]
  - DRUG EFFECT DECREASED [None]
  - FATIGUE [None]
  - MYALGIA [None]
  - ODYNOPHAGIA [None]
